FAERS Safety Report 4289598-4 (Version None)
Quarter: 2004Q1

REPORT INFORMATION
  Report Type: 
  Country: None (occurrence: None)
  Receive Date: 20040126
  Receipt Date: 20031009
  Transmission Date: 20041129
  Serious: No
  Sender: FDA-Public Use
  Company Number: USA030948633

PATIENT
  Age: 73 Year
  Sex: Female

DRUGS (7)
  1. FORTEO [Suspect]
     Indication: OSTEOPOROSIS
     Dosage: 20 UG/DAY
     Dates: start: 20030923
  2. LANOXIN [Concomitant]
  3. NORVASC [Concomitant]
  4. ACIPHEX [Concomitant]
  5. ALBUTEROL [Concomitant]
  6. TYLENOL [Concomitant]
  7. CALCIUM [Concomitant]

REACTIONS (5)
  - HYPERSOMNIA [None]
  - MUSCLE CRAMP [None]
  - MUSCLE TIGHTNESS [None]
  - PRURITUS GENERALISED [None]
  - SWELLING FACE [None]
